FAERS Safety Report 15440619 (Version 1)
Quarter: 2018Q3

REPORT INFORMATION
  Report Type: Spontaneous
  Country: US (occurrence: US)
  Receive Date: 20180925
  Receipt Date: 20180925
  Transmission Date: 20181010
  Serious: Yes (Other)
  Sender: FDA-Public Use
  Company Number: None

PATIENT
  Age: 57 Year
  Sex: Female
  Weight: 87.75 kg

DRUGS (5)
  1. LYSINE [Concomitant]
     Active Substance: LYSINE
  2. VITAMIN D [Concomitant]
     Active Substance: CHOLECALCIFEROL
  3. FLAX OIL [Concomitant]
  4. LOSARTAN POTASSIUM 25 MG TA [Suspect]
     Active Substance: LOSARTAN POTASSIUM
     Indication: HYPERTENSION
     Dosage: ?          QUANTITY:1 DF DOSAGE FORM;?
     Route: 048
     Dates: start: 20180922, end: 20180925
  5. HAWTHORN [Concomitant]
     Active Substance: CRATAEGUS LAEVIGATA FRUIT

REACTIONS (3)
  - Drug ineffective [None]
  - Product quality issue [None]
  - Product substitution issue [None]

NARRATIVE: CASE EVENT DATE: 20180925
